FAERS Safety Report 16547117 (Version 2)
Quarter: 2019Q4

REPORT INFORMATION
  Report Type: Spontaneous
  Country: IT (occurrence: IT)
  Receive Date: 20190709
  Receipt Date: 20191121
  Transmission Date: 20200122
  Serious: Yes (Hospitalization, Other)
  Sender: FDA-Public Use
  Company Number: IT-MYLANLABS-2019M1062692

PATIENT
  Age: 80 Year
  Sex: Male

DRUGS (6)
  1. CINACALCET HYDROCHLORIDE. [Suspect]
     Active Substance: CINACALCET HYDROCHLORIDE
     Indication: HYPERCALCAEMIA
     Dosage: 180 MILLIGRAM, QD (60 MG, TID)
     Route: 065
     Dates: start: 201706
  2. CINACALCET HYDROCHLORIDE. [Suspect]
     Active Substance: CINACALCET HYDROCHLORIDE
     Indication: HYPERPARATHYROIDISM PRIMARY
     Dosage: 60 MILLIGRAM, QD (30 MG, BID)
     Route: 065
     Dates: start: 201601
  3. CHOLECALCIFEROL [Concomitant]
     Active Substance: CHOLECALCIFEROL
     Dosage: UNK
  4. ALFUZOSIN [Concomitant]
     Active Substance: ALFUZOSIN
     Indication: BENIGN PROSTATIC HYPERPLASIA
     Dosage: UNK
  5. CINACALCET HYDROCHLORIDE. [Suspect]
     Active Substance: CINACALCET HYDROCHLORIDE
     Dosage: DOSAGE WAS GRADUALLY INCREASED
     Route: 065
     Dates: start: 201601
  6. VALSARTAN. [Concomitant]
     Active Substance: VALSARTAN
     Indication: HYPERTENSION
     Dosage: UNK

REACTIONS (4)
  - Thyroid infarction [Recovering/Resolving]
  - Pituitary apoplexy [Recovering/Resolving]
  - Tetany [Recovered/Resolved]
  - Infarction [Recovering/Resolving]

NARRATIVE: CASE EVENT DATE: 2017
